FAERS Safety Report 23835989 (Version 1)
Quarter: 2024Q2

REPORT INFORMATION
  Report Type: Spontaneous
  Country: US (occurrence: None)
  Receive Date: 20240507
  Receipt Date: 20240507
  Transmission Date: 20240716
  Serious: No
  Sender: FDA-Public Use
  Company Number: None

PATIENT
  Age: 80 Year
  Sex: Female
  Weight: 47.17 kg

DRUGS (4)
  1. KETOROLAC TROMETHAMINE [Suspect]
     Active Substance: KETOROLAC TROMETHAMINE
     Indication: Eye operation
     Dosage: OTHER FREQUENCY : EVERY 2 HRS.;?
     Route: 031
     Dates: start: 20240221, end: 20240226
  2. KETOROLAC TROMETHAMINE [Suspect]
     Active Substance: KETOROLAC TROMETHAMINE
     Dosage: FREQUENCY : 4 TIMES A DAY;?
     Route: 031
  3. TRIAMTERENE AND HYDROCHLOROTHIAZIDE [Concomitant]
     Active Substance: HYDROCHLOROTHIAZIDE\TRIAMTERENE
  4. Kirkland mature Multi [Concomitant]

REACTIONS (1)
  - Eye pain [None]

NARRATIVE: CASE EVENT DATE: 20240223
